FAERS Safety Report 15597299 (Version 10)
Quarter: 2019Q3

REPORT INFORMATION
  Report Type: Spontaneous
  Country: US (occurrence: US)
  Receive Date: 20181108
  Receipt Date: 20190927
  Transmission Date: 20191004
  Serious: Yes (Congenital Anomaly, Other)
  Sender: FDA-Public Use
  Company Number: PHEH2018US046963

PATIENT
  Age: 1 Year
  Sex: Male

DRUGS (3)
  1. ZOFRAN [Suspect]
     Active Substance: ONDANSETRON HYDROCHLORIDE
     Indication: FOETAL EXPOSURE DURING PREGNANCY
     Dosage: MOTHER DOSE: 04 MG, Q8H
     Route: 064
  2. ZOFRAN [Suspect]
     Active Substance: ONDANSETRON HYDROCHLORIDE
     Indication: FOETAL EXPOSURE DURING PREGNANCY
     Dosage: MOTHER DOSE: 2 MG/ML, UNK
     Route: 064
  3. ONDANSETRON AUROBINDO [Suspect]
     Active Substance: ONDANSETRON HYDROCHLORIDE
     Indication: FOETAL EXPOSURE DURING PREGNANCY
     Dosage: MOTHER DOSE: 8 MG, Q8H
     Route: 064

REACTIONS (65)
  - Eczema [Unknown]
  - Selective eating disorder [Unknown]
  - Gastroenteritis viral [Unknown]
  - Bronchitis [Unknown]
  - Restlessness [Unknown]
  - Haemangioma [Unknown]
  - Groin abscess [Unknown]
  - Optic ischaemic neuropathy [Unknown]
  - Rhinorrhoea [Unknown]
  - Decreased appetite [Unknown]
  - Cerumen impaction [Unknown]
  - Tympanic membrane perforation [Unknown]
  - Bronchial hyperreactivity [Unknown]
  - Viral rash [Unknown]
  - Wheezing [Unknown]
  - Conductive deafness [Unknown]
  - Impaired gastric emptying [Unknown]
  - Otitis media chronic [Unknown]
  - Acute sinusitis [Unknown]
  - Dermatitis [Unknown]
  - Snoring [Unknown]
  - Abscess limb [Unknown]
  - Foetal exposure during pregnancy [Unknown]
  - Otitis media acute [Unknown]
  - Asthma [Unknown]
  - Ear pain [Unknown]
  - Cough [Unknown]
  - Insomnia [Unknown]
  - Blood pressure increased [Unknown]
  - Erythema [Unknown]
  - Cleft lip and palate [Unknown]
  - Dysmorphism [Unknown]
  - Gastrooesophageal reflux disease [Unknown]
  - Eustachian tube dysfunction [Unknown]
  - Lactose intolerance [Unknown]
  - Abdominal pain [Unknown]
  - Refraction disorder [Unknown]
  - Staphylococcal infection [Unknown]
  - Viral infection [Unknown]
  - Prepuce redundant [Unknown]
  - Strabismus [Unknown]
  - Malaise [Unknown]
  - Bronchiolitis [Unknown]
  - Pneumonia [Unknown]
  - Ear infection [Unknown]
  - Upper respiratory tract infection [Unknown]
  - Pharyngitis [Unknown]
  - Poor feeding infant [Unknown]
  - Otitis externa [Unknown]
  - Effusion [Unknown]
  - Diarrhoea [Unknown]
  - Tooth malformation [Unknown]
  - Phimosis [Unknown]
  - Cellulitis [Unknown]
  - Respiratory distress [Unknown]
  - Injury [Unknown]
  - Impetigo [Unknown]
  - Respiratory syncytial virus infection [Unknown]
  - Folliculitis [Unknown]
  - Speech disorder [Unknown]
  - Speech sound disorder [Unknown]
  - Constipation [Unknown]
  - Pyrexia [Unknown]
  - Heart rate increased [Unknown]
  - Vomiting [Unknown]

NARRATIVE: CASE EVENT DATE: 201405
